FAERS Safety Report 7793646-4 (Version None)
Quarter: 2011Q4

REPORT INFORMATION
  Report Type: 
  Country: None (occurrence: None)
  Receive Date: 20111003
  Receipt Date: 20110927
  Transmission Date: 20120403
  Serious: Yes (Other)
  Sender: FDA-Public Use
  Company Number: US-PFIZER INC-2011230230

PATIENT
  Sex: Female
  Weight: 86.168 kg

DRUGS (8)
  1. RIBAVIRIN [Concomitant]
     Dosage: 600 MG, 2X/DAY
     Route: 048
  2. TYLENOL-500 [Concomitant]
     Dosage: UNK
  3. INTERFERON ALFA-2A [Concomitant]
     Dosage: UNK
  4. IBUPROFEN [Concomitant]
     Dosage: UNK
  5. GLUCOTROL [Suspect]
     Indication: TYPE 2 DIABETES MELLITUS
     Dosage: 5 MG, DAILY
     Dates: start: 20110301, end: 20110901
  6. LYRICA [Suspect]
     Indication: FIBROMYALGIA
     Dosage: 50 MG, 2X/DAY
     Dates: start: 20110601
  7. TEGRETOL [Concomitant]
     Indication: CONVULSION
     Dosage: 400 MG, 5X/DAY
     Route: 048
  8. CITALOPRAM [Concomitant]
     Dosage: 20 MG, DAILY

REACTIONS (3)
  - PRESYNCOPE [None]
  - BLOOD GLUCOSE DECREASED [None]
  - OEDEMA PERIPHERAL [None]
